FAERS Safety Report 13762749 (Version 2)
Quarter: 2017Q3

REPORT INFORMATION
  Report Type: Report from Study
  Country: US (occurrence: US)
  Receive Date: 20170718
  Receipt Date: 20170724
  Transmission Date: 20171127
  Serious: No
  Sender: FDA-Public Use
  Company Number: US-AMGEN-USASL2017103230

PATIENT
  Age: 2 Year
  Sex: Female

DRUGS (1)
  1. ENBREL [Suspect]
     Active Substance: ETANERCEPT
     Indication: JUVENILE IDIOPATHIC ARTHRITIS
     Dosage: 25 MG, QWK
     Route: 065
     Dates: start: 20170705

REACTIONS (5)
  - Wrong technique in product usage process [Unknown]
  - Underdose [Unknown]
  - Therapeutic response unexpected [Unknown]
  - Product storage error [Unknown]
  - Energy increased [Unknown]

NARRATIVE: CASE EVENT DATE: 201707
